FAERS Safety Report 7301246-5 (Version None)
Quarter: 2011Q1

REPORT INFORMATION
  Report Type: 
  Country: None (occurrence: None)
  Receive Date: 20110112
  Receipt Date: 20090323
  Transmission Date: 20110831
  Serious: Yes (Hospitalization, Other)
  Sender: FDA-Public Use
  Company Number: THYM-1000915

PATIENT
  Age: 41 Year
  Sex: Male
  Weight: 95.9 kg

DRUGS (18)
  1. MULTIVITAMIN [Concomitant]
  2. TEMAZEPAM [Concomitant]
  3. BENADRYL [Concomitant]
  4. LASIX [Concomitant]
  5. LAMICTAL [Concomitant]
  6. TACROLIMUS [Concomitant]
  7. ACETAMINOPHEN [Concomitant]
  8. NEXIUM IV [Concomitant]
  9. METHYLPREDNISOLONE [Concomitant]
  10. VALCYTE [Concomitant]
  11. PROGRAF [Concomitant]
  12. THYMOGLOBULIN [Suspect]
     Indication: LIVER TRANSPLANT
     Dosage: 150 MG, QOD, INTRAVENOUS
     Route: 042
     Dates: start: 20090208, end: 20090212
  13. SEPTRA [Concomitant]
  14. COLACE (DOCUSATE SODIUM) [Concomitant]
  15. ALBUMIN (HUMAN) [Concomitant]
  16. ASPIRIN [Concomitant]
  17. DILAUDID [Concomitant]
  18. PROPRANOLOL [Concomitant]

REACTIONS (6)
  - CYTOKINE RELEASE SYNDROME [None]
  - TACHYCARDIA [None]
  - RESPIRATORY DISTRESS [None]
  - PYREXIA [None]
  - DYSPNOEA [None]
  - HYPOXIA [None]
